FAERS Safety Report 8034357-X (Version None)
Quarter: 2012Q1

REPORT INFORMATION
  Report Type: 
  Country: None (occurrence: None)
  Receive Date: 20120110
  Receipt Date: 20120104
  Transmission Date: 20120608
  Serious: Yes (Other)
  Sender: FDA-Public Use
  Company Number: PHHY2012US000799

PATIENT
  Age: 5 Year
  Sex: Male

DRUGS (2)
  1. DEXTROAMPHETAMINE [Suspect]
     Dosage: 2.5 MG, TID
  2. CHLORPROMAZINE [Suspect]
     Indication: ABNORMAL BEHAVIOUR
     Dosage: 200 MG, QD

REACTIONS (7)
  - TONGUE PARALYSIS [None]
  - TRISMUS [None]
  - SYDENHAM'S CHOREA [None]
  - SPEECH DISORDER [None]
  - COORDINATION ABNORMAL [None]
  - DYSKINESIA [None]
  - AGGRESSION [None]
